FAERS Safety Report 5208043-5 (Version None)
Quarter: 2007Q1

REPORT INFORMATION
  Report Type: 
  Country: None (occurrence: None)
  Receive Date: 20070110
  Receipt Date: 20061229
  Transmission Date: 20070707
  Serious: Yes (Death)
  Sender: FDA-Public Use
  Company Number: 2006SP008385

PATIENT
  Age: 54 Year
  Sex: Male

DRUGS (5)
  1. REBETOL [Suspect]
     Indication: HEPATITIS C
     Dosage: 400 MG, QD; PO
     Route: 048
     Dates: start: 20060906
  2. PEGASYS [Suspect]
     Indication: HEPATITIS C
     Dosage: 135 MCG; QW;
     Dates: start: 20060926
  3. RENAGEL [Concomitant]
  4. RAMIPRIL [Concomitant]
  5. METOPROLOL SUCCINATE [Concomitant]

REACTIONS (3)
  - COMPLETED SUICIDE [None]
  - FATIGUE [None]
  - FEELING ABNORMAL [None]
